FAERS Safety Report 10638589 (Version 1)
Quarter: 2014Q4

REPORT INFORMATION
  Report Type: Spontaneous
  Country: US (occurrence: None)
  Receive Date: 20141121
  Receipt Date: 20141121
  Transmission Date: 20150529
  Serious: No
  Sender: FDA-Public Use
  Company Number: 163-10004-14074553

PATIENT
  Age: 60 Year
  Sex: Male
  Weight: 77.11 kg

DRUGS (4)
  1. FLOMAX (UNKNOWN) [Concomitant]
  2. OTEZLA [Suspect]
     Active Substance: APREMILAST
     Indication: PSORIATIC ARTHROPATHY
     Dosage: 60 MG, 2 IN 1 D, PO
     Route: 048
     Dates: start: 20140530
  3. METHOTREXATE (METHOTREXATE) [Concomitant]
     Active Substance: METHOTREXATE
  4. ANDROGEL [Concomitant]
     Active Substance: TESTOSTERONE

REACTIONS (3)
  - Muscle spasms [None]
  - Nausea [None]
  - Diarrhoea [None]

NARRATIVE: CASE EVENT DATE: 201406
